FAERS Safety Report 9433420 (Version 2)
Quarter: 2014Q2

REPORT INFORMATION
  Report Type: Spontaneous
  Country: US (occurrence: US)
  Receive Date: 20130731
  Receipt Date: 20140530
  Transmission Date: 20141212
  Serious: Yes (Hospitalization, Disabling, Other)
  Sender: FDA-Public Use
  Company Number: US-009507513-1307USA017146

PATIENT
  Sex: Female
  Weight: 86.17 kg

DRUGS (4)
  1. NUVARING [Suspect]
     Indication: CONTRACEPTION
     Dosage: UNK
     Route: 067
     Dates: start: 200908, end: 20091019
  2. ADVAIR [Concomitant]
     Dosage: UNK
  3. ALBUTEROL [Concomitant]
     Indication: ASTHMA
     Dosage: UNK
  4. SINGULAIR [Concomitant]
     Dosage: 10 MG QD
     Route: 048

REACTIONS (8)
  - Asthma [Recovering/Resolving]
  - Pneumonia [Unknown]
  - Pulmonary embolism [Recovering/Resolving]
  - Coagulopathy [Unknown]
  - Maternal exposure before pregnancy [Recovered/Resolved]
  - Depression [Unknown]
  - Dysmenorrhoea [Unknown]
  - Blood magnesium decreased [Unknown]
